FAERS Safety Report 9526460 (Version 2)
Quarter: 2013Q3

REPORT INFORMATION
  Report Type: Report from Study
  Country: US (occurrence: US)
  Receive Date: 20130916
  Receipt Date: 20130916
  Transmission Date: 20140515
  Serious: Yes (Hospitalization)
  Sender: FDA-Public Use
  Company Number: US-TAKEDA-2013TUS000393

PATIENT
  Age: 53 Year
  Sex: Male
  Weight: 122.5 kg

DRUGS (25)
  1. BLINDED ALLOPURINOL [Suspect]
     Indication: HYPERURICAEMIA
     Dosage: UNK, QD
     Route: 048
     Dates: start: 20120309, end: 20130809
  2. BLINDED FEBUXOSTAT [Suspect]
     Indication: HYPERURICAEMIA
     Dosage: UNK, QD
     Route: 048
     Dates: start: 20120309, end: 20130809
  3. BLINDED ALLOPURINOL [Suspect]
     Dosage: UNK
     Route: 048
     Dates: start: 20130822
  4. BLINDED FEBUXOSTAT [Suspect]
     Dosage: UNK
     Route: 048
     Dates: start: 20130822
  5. ATORVASTATIN [Concomitant]
     Indication: BLOOD CHOLESTEROL INCREASED
     Dosage: 80 MG, QD
     Route: 048
     Dates: start: 2006
  6. FERROUS SULFATE [Concomitant]
     Indication: PROPHYLAXIS
     Dosage: 325 MG, BID
     Route: 048
     Dates: start: 2006
  7. HYDROCHLOROTHIAZIDE [Concomitant]
     Indication: HYPERTENSION
     Dosage: 25 MG, QD
     Route: 048
     Dates: start: 20061109
  8. METFORMIN [Concomitant]
     Indication: DIABETES MELLITUS
     Dosage: 100 MG, BID
     Route: 048
     Dates: start: 20061109
  9. METOPROLOL [Concomitant]
     Indication: HYPERTENSION
     Dosage: 50 MG, BID
     Route: 048
     Dates: start: 20061109
  10. RANITIDINE [Concomitant]
     Indication: PROPHYLAXIS
     Dosage: 150 MG, QD
     Route: 048
     Dates: start: 2006
  11. CLOPIDOGREL [Concomitant]
     Indication: PROPHYLAXIS
     Dosage: 75 MG, QD
     Route: 048
     Dates: start: 20120301
  12. NOVOLOG [Concomitant]
     Indication: DIABETES MELLITUS
     Dosage: 70/30ML, BID
     Route: 058
     Dates: start: 20130205
  13. FUROSEMIDE [Concomitant]
     Indication: FLUID RETENTION
     Dosage: 40 MG, TID
     Route: 048
     Dates: start: 2013
  14. HYDROCODONE [Concomitant]
     Indication: GOUT
     Dosage: 5/325 MG, UNK
     Route: 048
     Dates: start: 2013
  15. LEVOTHYROXINE [Concomitant]
     Indication: THYROID THERAPY
     Dosage: 0.1 MG, QD
     Route: 048
     Dates: start: 2013
  16. LOSARTAN [Concomitant]
     Indication: HYPERTENSION
     Dosage: 100 MG, QD
     Route: 048
     Dates: start: 2013
  17. NIFEDIPINE [Concomitant]
     Indication: HYPERTENSION
     Dosage: 90 MG, QD
     Route: 048
     Dates: start: 2013
  18. TRAZODONE [Concomitant]
     Indication: ANXIETY
     Dosage: 50 MG,QHS
     Route: 048
     Dates: start: 2013
  19. TRAZODONE [Concomitant]
     Indication: SLEEP DISORDER
  20. SPIRONOLACTONE [Concomitant]
     Indication: FLUID RETENTION
     Dosage: 25 MG, QD
     Route: 048
     Dates: start: 2013
  21. GABAPENTIN [Concomitant]
     Indication: NEURALGIA
     Dosage: 600 MG, BID
     Route: 048
     Dates: start: 2013
  22. PREDNISONE [Concomitant]
     Indication: GOUT
     Dosage: 10 MG, QD
     Route: 048
     Dates: start: 2013
  23. ERGOCALCIFEROL [Concomitant]
     Indication: SUPPLEMENTATION THERAPY
     Dosage: 50000 IU, 1/WEEK
     Route: 048
     Dates: start: 2013
  24. NITROSTAT [Concomitant]
     Indication: CHEST PAIN
     Dosage: 0.4 MG, UNK
     Route: 060
     Dates: start: 2013
  25. POTASSIUM CHLORIDE [Concomitant]
     Indication: SUPPLEMENTATION THERAPY
     Dosage: 20 MG, BID
     Route: 048
     Dates: start: 2013

REACTIONS (3)
  - Venous insufficiency [Recovered/Resolved]
  - Cellulitis [Recovered/Resolved]
  - Chest pain [Recovered/Resolved]
